FAERS Safety Report 25341509 (Version 2)
Quarter: 2025Q2

REPORT INFORMATION
  Report Type: Spontaneous
  Country: US (occurrence: US)
  Receive Date: 20250521
  Receipt Date: 20250602
  Transmission Date: 20250716
  Serious: Yes (Other)
  Sender: MYLAN
  Company Number: US-MYLANLABS-2025M1042240

PATIENT
  Sex: Female

DRUGS (8)
  1. LATANOPROST [Suspect]
     Active Substance: LATANOPROST
     Indication: Intraocular pressure test abnormal
  2. LATANOPROST [Suspect]
     Active Substance: LATANOPROST
     Route: 065
  3. LATANOPROST [Suspect]
     Active Substance: LATANOPROST
     Route: 065
  4. LATANOPROST [Suspect]
     Active Substance: LATANOPROST
  5. SIMBRINZA [Concomitant]
     Active Substance: BRIMONIDINE TARTRATE\BRINZOLAMIDE
     Indication: Intraocular pressure test abnormal
  6. SIMBRINZA [Concomitant]
     Active Substance: BRIMONIDINE TARTRATE\BRINZOLAMIDE
     Route: 065
  7. SIMBRINZA [Concomitant]
     Active Substance: BRIMONIDINE TARTRATE\BRINZOLAMIDE
     Route: 065
  8. SIMBRINZA [Concomitant]
     Active Substance: BRIMONIDINE TARTRATE\BRINZOLAMIDE

REACTIONS (12)
  - Scleritis [Unknown]
  - Eye swelling [Unknown]
  - Eye disorder [Unknown]
  - Swelling of eyelid [Unknown]
  - Erythema of eyelid [Unknown]
  - Skin exfoliation [Unknown]
  - Conjunctival discolouration [Unknown]
  - Visual acuity reduced [Unknown]
  - Ocular hyperaemia [Unknown]
  - Vision blurred [Unknown]
  - Eye pain [Unknown]
  - Photophobia [Unknown]
